FAERS Safety Report 23904246 (Version 2)
Quarter: 2025Q2

REPORT INFORMATION
  Report Type: Spontaneous
  Country: US (occurrence: US)
  Receive Date: 20240527
  Receipt Date: 20250519
  Transmission Date: 20250717
  Serious: No
  Sender: NEXUS PHARMACEUTICALS
  Company Number: US-Nexus Pharma-000257

PATIENT

DRUGS (1)
  1. EMERPHED [Suspect]
     Active Substance: EPHEDRINE SULFATE
     Indication: Product used for unknown indication

REACTIONS (1)
  - Therapeutic product effect incomplete [Unknown]
